FAERS Safety Report 7722352-7 (Version None)
Quarter: 2011Q3

REPORT INFORMATION
  Report Type: 
  Country: None (occurrence: None)
  Receive Date: 20110825
  Receipt Date: 20110817
  Transmission Date: 20111222
  Serious: Yes (Hospitalization)
  Sender: FDA-Public Use
  Company Number: 15979586

PATIENT
  Age: 59 Year
  Sex: Male

DRUGS (4)
  1. APIXABAN [Suspect]
     Indication: EMBOLISM
     Dosage: 5 MILLIGRAM 1 DAY, ORAL
     Route: 048
     Dates: start: 20110224, end: 20110811
  2. ENOXAPARIN SODIUM [Suspect]
     Indication: EMBOLISM
  3. PLACEBO [Suspect]
     Indication: EMBOLISM
     Dates: start: 20110224, end: 20110811
  4. WARFARIN SODIUM [Suspect]
     Indication: EMBOLISM
     Dosage: 6 MILLIGRAM 1 DAY, ORAL
     Route: 048
     Dates: start: 20110224, end: 20110811

REACTIONS (1)
  - ASCITES [None]
